FAERS Safety Report 13083375 (Version 2)
Quarter: 2017Q1

REPORT INFORMATION
  Report Type: Report from Study
  Country: US (occurrence: US)
  Receive Date: 20170104
  Receipt Date: 20170226
  Transmission Date: 20170428
  Serious: Yes (Other)
  Sender: FDA-Public Use
  Company Number: US-009507513-1612USA014434

PATIENT
  Age: 66 Year
  Sex: Female
  Weight: 111.8 kg

DRUGS (4)
  1. KEYTRUDA [Suspect]
     Active Substance: PEMBROLIZUMAB
     Indication: LYMPHOMA
     Dosage: 111 MG EVERY 21 DAYS
     Route: 042
     Dates: start: 20151104, end: 20160106
  2. KEYTRUDA [Suspect]
     Active Substance: PEMBROLIZUMAB
     Indication: MALIGNANT RESPIRATORY TRACT NEOPLASM
  3. KEYTRUDA [Suspect]
     Active Substance: PEMBROLIZUMAB
     Indication: GASTROINTESTINAL CARCINOMA
  4. KEYTRUDA [Suspect]
     Active Substance: PEMBROLIZUMAB
     Indication: OVARIAN CANCER

REACTIONS (8)
  - Product use issue [Recovered/Resolved]
  - Gastrointestinal haemorrhage [Unknown]
  - Metastases to liver [Unknown]
  - Iron deficiency anaemia [Unknown]
  - Duodenal perforation [Unknown]
  - Lung cancer metastatic [Unknown]
  - Ovarian cancer metastatic [Unknown]
  - Gastrointestinal haemorrhage [Unknown]

NARRATIVE: CASE EVENT DATE: 20151104
